FAERS Safety Report 13139984 (Version 3)
Quarter: 2017Q1

REPORT INFORMATION
  Report Type: Report from Study
  Country: IT (occurrence: IT)
  Receive Date: 20170123
  Receipt Date: 20170213
  Transmission Date: 20170428
  Serious: Yes (Hospitalization, Other)
  Sender: FDA-Public Use
  Company Number: IT-VERTEX PHARMACEUTICALS-2017-000261

PATIENT
  Age: 21 Year
  Sex: Female
  Weight: 39 kg

DRUGS (15)
  1. DKX [Concomitant]
     Dosage: 1 CAP, QD
     Route: 048
     Dates: start: 20140627
  2. BECLOMETASONE [Concomitant]
     Active Substance: BECLOMETHASONE DIPROPIONATE
     Dosage: 2 FL, 1.6 MG, QD
  3. HYPERTONIC SALINE SOLUTION [Concomitant]
     Active Substance: SODIUM CHLORIDE
     Dosage: 1FL, QD
  4. LAVONASE [Concomitant]
     Dosage: 250 ML, QD
     Route: 045
  5. VX-661/VX-770 [Suspect]
     Active Substance: INVESTIGATIONAL PRODUCT
     Indication: CYSTIC FIBROSIS
     Dosage: 100 MG, QD
     Route: 048
     Dates: start: 20160801, end: 20170115
  6. NIFEREX [Concomitant]
     Active Substance: IRON\POLYSACCHARIDES
     Dosage: 100 MG, QD
     Route: 048
     Dates: start: 20160323
  7. KETOPROFEN. [Concomitant]
     Active Substance: KETOPROFEN
  8. SALBUTAMOL [Concomitant]
     Active Substance: ALBUTEROL
  9. COLIMICINA [Concomitant]
     Active Substance: COLISTIN SULFATE
     Dosage: 1 APPLICATION, 2X 28G
  10. VX-770/VX-661 [Suspect]
     Active Substance: INVESTIGATIONAL PRODUCT
     Indication: CYSTIC FIBROSIS
     Dosage: 150 MG, BID
     Route: 048
     Dates: start: 20160801, end: 20170116
  11. PULMOZYME [Concomitant]
     Active Substance: DORNASE ALFA
     Dosage: 1 FL 1.000.000 UI/QD AEROSOL
     Dates: start: 2003
  12. TOBRAMICINA [Concomitant]
     Dosage: 1 APPLICATION X 2 X 28G
  13. CREON [Concomitant]
     Active Substance: PANCRELIPASE AMYLASE\PANCRELIPASE LIPASE\PANCRELIPASE PROTEASE
     Dosage: 20,000-40,000 UI/MEALS
     Route: 048
     Dates: start: 19971117
  14. LANSOPRAZOLE. [Concomitant]
     Active Substance: LANSOPRAZOLE
     Dosage: 30 MG, QD
     Route: 048
     Dates: start: 20160323
  15. SALMETEROL/FLUTICASONE [Concomitant]
     Active Substance: FLUTICASONE PROPIONATE\SALMETEROL XINAFOATE
     Dosage: 2 VV/QD
     Route: 055

REACTIONS (1)
  - Haemoptysis [Recovered/Resolved]

NARRATIVE: CASE EVENT DATE: 20170116
